FAERS Safety Report 8220183-5 (Version None)
Quarter: 2012Q1

REPORT INFORMATION
  Report Type: 
  Country: None (occurrence: None)
  Receive Date: 20120301
  Receipt Date: 20120120
  Transmission Date: 20120608
  Serious: Yes (Death)
  Sender: FDA-Public Use
  Company Number: 318449USA

PATIENT
  Age: 43 Year
  Sex: Male

DRUGS (4)
  1. BUPRENORPHINE [Suspect]
  2. ALPRAZOLAM [Suspect]
  3. COCAINE [Suspect]
  4. ETHANOL [Suspect]

REACTIONS (1)
  - TOXICITY TO VARIOUS AGENTS [None]
